FAERS Safety Report 17944290 (Version 1)
Quarter: 2020Q2

REPORT INFORMATION
  Report Type: Spontaneous
  Country: IT (occurrence: IT)
  Receive Date: 20200625
  Receipt Date: 20200625
  Transmission Date: 20200714
  Serious: Yes (Hospitalization)
  Sender: FDA-Public Use
  Company Number: IT-GLAXOSMITHKLINE-IT2020EME083686

PATIENT
  Age: 76 Year
  Sex: Female

DRUGS (1)
  1. NUCALA [Suspect]
     Active Substance: MEPOLIZUMAB
     Indication: ASTHMA
     Dosage: 100 MG, Z
     Dates: end: 20200514

REACTIONS (4)
  - Postoperative wound complication [Unknown]
  - Hospitalisation [Unknown]
  - Hip arthroplasty [Unknown]
  - Inflammation [Unknown]

NARRATIVE: CASE EVENT DATE: 20200305
